FAERS Safety Report 11688651 (Version 2)
Quarter: 2015Q4

REPORT INFORMATION
  Report Type: Spontaneous
  Country: GB (occurrence: GB)
  Receive Date: 20151102
  Receipt Date: 20151209
  Transmission Date: 20160304
  Serious: Yes (Hospitalization)
  Sender: FDA-Public Use
  Company Number: GB-HOSPIRA-3056725

PATIENT
  Age: 62 Year
  Sex: Female

DRUGS (8)
  1. VELIPARIB [Suspect]
     Active Substance: VELIPARIB
     Indication: COLORECTAL CANCER
     Dosage: DAYS -2 THROUGH 5 OF EVERY 14 DAY CYCLE
     Route: 048
     Dates: start: 20150819
  2. FLUOROURACIL. [Suspect]
     Active Substance: FLUOROURACIL
     Indication: COLORECTAL CANCER
     Dosage: DAY 1 OF EVERY 14-DAY CYCLE
     Route: 040
     Dates: start: 20150821
  3. IRINOTECAN HYDROCHLORIDE. [Suspect]
     Active Substance: IRINOTECAN HYDROCHLORIDE
     Indication: COLORECTAL CANCER
     Dosage: DAY 1 OF EVERY 14-DAY CYCLE
     Route: 042
     Dates: start: 20150821
  4. PREGABALIN. [Concomitant]
     Active Substance: PREGABALIN
     Indication: NEURALGIA
     Route: 061
     Dates: start: 20150601
  5. FLUOROURACIL. [Suspect]
     Active Substance: FLUOROURACIL
     Indication: COLORECTAL CANCER
     Dosage: DAY 1 OF EVERY 14-DAY CYCLE
     Route: 041
     Dates: start: 20150821
  6. MIRTAZAPINE. [Concomitant]
     Active Substance: MIRTAZAPINE
     Indication: ANXIETY
     Route: 048
     Dates: start: 20150601
  7. LEUCOVORIN                         /00566701/ [Concomitant]
     Active Substance: LEUCOVORIN
     Indication: COLORECTAL CANCER
     Dosage: DAYS 1 OF EVERY 14 DAY CYCLE
     Route: 042
     Dates: start: 20150819
  8. ZOMORPH [Concomitant]
     Active Substance: MORPHINE SULFATE
     Indication: NEURALGIA
     Route: 048
     Dates: start: 20150401

REACTIONS (6)
  - Anal infection [Unknown]
  - Disturbance in attention [Unknown]
  - Febrile neutropenia [Recovered/Resolved]
  - Chills [Unknown]
  - Aphasia [Unknown]
  - Dizziness [Unknown]

NARRATIVE: CASE EVENT DATE: 20150928
